FAERS Safety Report 19736289 (Version 1)
Quarter: 2021Q3

REPORT INFORMATION
  Report Type: Spontaneous
  Country: US (occurrence: US)
  Receive Date: 20210823
  Receipt Date: 20210823
  Transmission Date: 20211014
  Serious: Yes (Other)
  Sender: FDA-Public Use
  Company Number: US-JNJFOC-20210826101

PATIENT
  Age: 82 Year
  Sex: Female

DRUGS (2)
  1. NEUTROGENA ULTRA SHEER BODY MIST SUNSCREEN BROAD SPECTRUM SPF 45 (AVO\HOM\OCTI\OCTO) [Suspect]
     Active Substance: AVOBENZONE\HOMOSALATE\OCTISALATE\OCTOCRYLENE
     Indication: PROPHYLAXIS AGAINST SOLAR RADIATION
     Dosage: ONE GENEROUS ^SQUEEZE^ OF TUBE DAILY, EACH MORNING AFTER WASHING UP, AND SOMETIMES A SECOND TIME
     Route: 061
     Dates: start: 20180101
  2. NEUTROGENA ULTRA SHEER DRY TOUCH SUNSCREEN BROAD SPECTRUM SPF 70 [Suspect]
     Active Substance: AVOBENZONE\HOMOSALATE\OCTISALATE\OCTOCRYLENE
     Indication: PROPHYLAXIS AGAINST SOLAR RADIATION
     Dosage: ONE GENEROUS ^SQUEEZE^ OF TUBE DAILY, EACH MORNING AFTER WASHING UP, AND SOMETIMES A SECOND TIME
     Route: 061
     Dates: start: 20180101

REACTIONS (1)
  - Basal cell carcinoma [Recovered/Resolved]

NARRATIVE: CASE EVENT DATE: 20200401
